FAERS Safety Report 4380282-5 (Version None)
Quarter: 2004Q2

REPORT INFORMATION
  Report Type: 
  Country: None (occurrence: None)
  Receive Date: 20040618
  Receipt Date: 20040220
  Transmission Date: 20050107
  Serious: Yes (Hospitalization)
  Sender: FDA-Public Use
  Company Number: PHBS2004BE02545

PATIENT
  Age: 66 Year
  Sex: Female

DRUGS (19)
  1. CLOZAPINE [Suspect]
     Indication: INSOMNIA
     Route: 065
     Dates: start: 20030201
  2. CLOZAPINE [Suspect]
     Dosage: 150 MG/D
     Route: 065
  3. CLOZAPINE [Suspect]
     Dosage: 100 MG/D
     Route: 065
     Dates: start: 20030501
  4. CLOZAPINE [Suspect]
     Dosage: 75 MG/D
     Route: 065
     Dates: start: 20040107
  5. CLOZAPINE [Suspect]
     Dosage: 50 MG/D
     Route: 065
     Dates: start: 20040125
  6. CLOZAPINE [Suspect]
     Dosage: 25 MG, BID
     Route: 065
     Dates: start: 20040318
  7. CLOZAPINE [Suspect]
     Dosage: 25 MG /DAY
     Route: 065
     Dates: start: 20040207, end: 20040211
  8. CLOZAPINE [Suspect]
     Dosage: 50 MG, QHS
     Dates: start: 20040218
  9. XANAX [Concomitant]
     Route: 065
     Dates: start: 20020829
  10. XANAX [Concomitant]
     Dosage: .5 MG, BID
     Route: 065
     Dates: start: 20030701
  11. RIVOTRIL [Concomitant]
     Dosage: 1 MG, QHS
     Route: 065
     Dates: start: 20030801
  12. RIVOTRIL [Concomitant]
     Route: 065
     Dates: start: 20031103, end: 20031115
  13. ANTIHYPERTENSIVES [Concomitant]
     Route: 065
  14. APROVEL [Concomitant]
     Dosage: 75 MG, QD
     Route: 065
  15. ALDACTAZINE [Concomitant]
     Dosage: UNK, Q48H
     Route: 065
  16. ISOTEN [Concomitant]
     Dosage: 5 MG, QHS
     Route: 065
  17. ASAFLOW [Concomitant]
     Dosage: 160 MG, QD
     Route: 065
  18. TRAZOLAN [Concomitant]
     Dosage: 50 MG, QHS
     Route: 065
  19. IMOVANE [Concomitant]
     Dosage: 3.75 OR 7.5 MG IN THE EVENING
     Route: 065

REACTIONS (24)
  - ABDOMINAL PAIN [None]
  - BLOOD CORTISOL INCREASED [None]
  - CHILLS [None]
  - DEPRESSED LEVEL OF CONSCIOUSNESS [None]
  - DIARRHOEA [None]
  - DRUG WITHDRAWAL SYNDROME [None]
  - DYSKINESIA [None]
  - EXTRAPYRAMIDAL DISORDER [None]
  - GASTROINTESTINAL DISORDER [None]
  - HOT FLUSH [None]
  - HYPERHIDROSIS [None]
  - INSOMNIA [None]
  - MALAISE [None]
  - MYOCLONUS [None]
  - NAUSEA [None]
  - OSTEOPOROSIS [None]
  - PYREXIA [None]
  - RECTAL POLYP [None]
  - RESTLESSNESS [None]
  - SEDATION [None]
  - SOMNOLENCE [None]
  - TARDIVE DYSKINESIA [None]
  - TREMOR [None]
  - VOMITING [None]
